FAERS Safety Report 6590993-9 (Version None)
Quarter: 2010Q1

REPORT INFORMATION
  Report Type: 
  Country: None (occurrence: None)
  Receive Date: 20100219
  Receipt Date: 20100210
  Transmission Date: 20100710
  Serious: Yes (Hospitalization, Other)
  Sender: FDA-Public Use
  Company Number: IT-ELI_LILLY_AND_COMPANY-IT201002002879

PATIENT
  Sex: Male

DRUGS (12)
  1. HUMALOG [Suspect]
     Indication: TYPE 2 DIABETES MELLITUS
     Dosage: 15 U, DAILY (1/D)
     Route: 058
  2. HUMULIN 70/30 [Suspect]
     Indication: TYPE 2 DIABETES MELLITUS
     Dosage: 5 U, DAILY (1/D)
     Route: 058
  3. LANSOPRAZOLE [Concomitant]
     Indication: PROPHYLAXIS AGAINST GASTROINTESTINAL ULCER
     Dosage: 1 D/F, UNK
     Route: 048
  4. LASIX [Concomitant]
     Dosage: 25 MG, UNK
     Route: 048
  5. NORVASC [Concomitant]
     Dosage: 5 MG, UNK
     Route: 048
  6. TENORMIN [Concomitant]
     Dosage: 100 MG, UNK
     Route: 048
  7. FERROGRAD [Concomitant]
     Indication: NORMOCHROMIC NORMOCYTIC ANAEMIA
     Dosage: 105 MG, UNK
     Route: 048
  8. ASPIRIN [Concomitant]
     Dosage: 160 MG, UNK
     Route: 048
  9. BENEXOL B1 B6 B12 [Concomitant]
     Dosage: 100 MG, UNK
     Route: 048
  10. FOLIC ACID [Concomitant]
     Dosage: 5 MG, UNK
     Route: 048
  11. TRIATEC [Concomitant]
     Dosage: 2.5 MG, UNK
     Route: 048
  12. TORVAST [Concomitant]
     Indication: HYPERCHOLESTEROLAEMIA
     Dosage: 10 MG, UNK
     Route: 048

REACTIONS (2)
  - HYPOGLYCAEMIA [None]
  - PLEURAL EFFUSION [None]
